FAERS Safety Report 15559395 (Version 1)
Quarter: 2018Q4

REPORT INFORMATION
  Report Type: Spontaneous
  Country: FR (occurrence: FR)
  Receive Date: 20181029
  Receipt Date: 20181029
  Transmission Date: 20190205
  Serious: Yes (Death)
  Sender: FDA-Public Use
  Company Number: FR-ACCORD-089727

PATIENT
  Age: 83 Year
  Sex: Male
  Weight: 50 kg

DRUGS (11)
  1. KARDEGIC [Suspect]
     Active Substance: ASPIRIN DL-LYSINE
     Indication: PROPHYLAXIS
     Route: 048
     Dates: end: 20170820
  2. ESOMEPRAZOLE/ESOMEPRAZOLE MAGNESIUM/ESOMEPRAZOLE SODIUM [Concomitant]
     Active Substance: ESOMEPRAZOLE
  3. ATENOLOL/ATENOLOL HYDROCHLORIDE [Suspect]
     Active Substance: ATENOLOL HYDROCHLORIDE
     Indication: HYPERTENSION
     Route: 048
     Dates: end: 20170820
  4. CHLORAMINOPHENE [Suspect]
     Active Substance: CHLORAMBUCIL
     Indication: CHRONIC LYMPHOCYTIC LEUKAEMIA
     Dosage: STRENGTH:  2 MG
     Route: 048
     Dates: start: 20170809, end: 20170809
  5. GAZYVARO [Suspect]
     Active Substance: OBINUTUZUMAB
     Indication: CHRONIC LYMPHOCYTIC LEUKAEMIA
     Dosage: STRENGTH: 1000 MG
     Route: 041
     Dates: start: 20170809, end: 20170809
  6. CALCIPARINE [Concomitant]
     Active Substance: HEPARIN CALCIUM
  7. PARACETAMOL [Concomitant]
     Active Substance: ACETAMINOPHEN
  8. AMLODIPINE [Suspect]
     Active Substance: AMLODIPINE BESYLATE
     Indication: HYPERTENSION
     Route: 048
     Dates: end: 20170820
  9. FUROSEMIDE. [Concomitant]
     Active Substance: FUROSEMIDE
  10. GRANOCYTE [Concomitant]
     Active Substance: LENOGRASTIM
  11. AMIODARONE [Concomitant]
     Active Substance: AMIODARONE

REACTIONS (2)
  - Bone marrow failure [Fatal]
  - Septic shock [Fatal]

NARRATIVE: CASE EVENT DATE: 20170819
